FAERS Safety Report 18864971 (Version 1)
Quarter: 2021Q1

REPORT INFORMATION
  Report Type: Spontaneous
  Country: US (occurrence: US)
  Receive Date: 20210208
  Receipt Date: 20210208
  Transmission Date: 20210420
  Serious: Yes (Other)
  Sender: FDA-Public Use
  Company Number: US-ELI_LILLY_AND_COMPANY-US202102001277

PATIENT
  Age: 51 Year
  Sex: Male

DRUGS (8)
  1. INSULIN BOVINE ZINC SUSPENSION (CRYSTALLINE) [Suspect]
     Active Substance: INSULIN BEEF
     Indication: SKIN TEST
     Dosage: 0.1 ML, UNKNOWN
     Route: 023
     Dates: start: 1968
  2. ILETIN I [Suspect]
     Active Substance: INSULIN PORK\INSULIN PURIFIED PORK
     Indication: DIABETES MELLITUS
     Dosage: 40 INTERNATIONAL UNIT, UNKNOWN
     Route: 065
     Dates: start: 1968
  3. ILETIN I [Suspect]
     Active Substance: INSULIN PORK\INSULIN PURIFIED PORK
     Indication: DIABETES MELLITUS INADEQUATE CONTROL
     Dosage: 0.1 ML, UNKNOWN
     Route: 023
     Dates: start: 1968
  4. ILETIN I [Suspect]
     Active Substance: INSULIN PORK\INSULIN PURIFIED PORK
     Indication: SKIN TEST
  5. HUMAN INSULIN (RDNA ORIGIN) [Suspect]
     Active Substance: INSULIN HUMAN
     Indication: SKIN TEST
     Dosage: 0.1 ML, UNKNOWN
     Route: 023
  6. ILETIN I [Suspect]
     Active Substance: INSULIN PORK\INSULIN PURIFIED PORK
     Indication: SKIN TEST
     Dosage: 0.1 ML, UNKNOWN
     Route: 023
  7. INSULIN, ANIMAL [Suspect]
     Active Substance: INSULIN NOS
     Indication: SKIN TEST
     Dosage: 0.1 ML, UNKNOWN
     Route: 023
  8. INSULIN, ANIMAL [Suspect]
     Active Substance: INSULIN NOS
     Indication: SKIN TEST
     Dosage: 0.1 ML, UNKNOWN
     Route: 023

REACTIONS (4)
  - Injection site urticaria [Recovered/Resolved]
  - Injection site erythema [Recovered/Resolved]
  - Drug hypersensitivity [Recovered/Resolved]
  - Skin test positive [Unknown]

NARRATIVE: CASE EVENT DATE: 1968
